FAERS Safety Report 10172050 (Version 1)
Quarter: 2014Q2

REPORT INFORMATION
  Report Type: Report from Study
  Country: MX (occurrence: MX)
  Receive Date: 20140515
  Receipt Date: 20140515
  Transmission Date: 20141212
  Serious: Yes (Death)
  Sender: FDA-Public Use
  Company Number: PHHY2014MX058274

PATIENT
  Sex: 0

DRUGS (1)
  1. EXELON [Suspect]
     Dosage: 9.5 MG (10 CM2)
     Route: 062

REACTIONS (1)
  - Cardiac arrest [Fatal]
